FAERS Safety Report 15799255 (Version 1)
Quarter: 2019Q1

REPORT INFORMATION
  Report Type: Spontaneous
  Country: GB (occurrence: GB)
  Receive Date: 20190108
  Receipt Date: 20190108
  Transmission Date: 20190417
  Serious: Yes (Hospitalization)
  Sender: FDA-Public Use
  Company Number: GB-OXFORD PHARMACEUTICALS, LLC-2018OXF01594

PATIENT
  Age: 47 Year
  Sex: Female

DRUGS (5)
  1. CALCIUM CARBONATE. [Concomitant]
     Active Substance: CALCIUM CARBONATE
     Dosage: 600 MG, 1X/DAY
  2. AMLODIPINE [Concomitant]
     Active Substance: AMLODIPINE BESYLATE
     Dosage: 5 MG, 1X/DAY
  3. ALFACALDICOL [Concomitant]
     Dosage: 0.25 ?G, 1X/DAY
  4. BACLOFEN. [Suspect]
     Active Substance: BACLOFEN
     Indication: ARTHRALGIA
  5. BACLOFEN. [Suspect]
     Active Substance: BACLOFEN
     Indication: BACK PAIN
     Dosage: 25 MG, ONCE
     Route: 048

REACTIONS (4)
  - Areflexia [Recovered/Resolved]
  - Hypertension [Recovered/Resolved]
  - Intentional product misuse [Recovered/Resolved]
  - Toxicity to various agents [Recovered/Resolved]
